FAERS Safety Report 25425208 (Version 1)
Quarter: 2025Q2

REPORT INFORMATION
  Report Type: Spontaneous
  Country: FR (occurrence: FR)
  Receive Date: 20250611
  Receipt Date: 20250611
  Transmission Date: 20250717
  Serious: Yes (Hospitalization)
  Sender: AMERICAN REGENT
  Company Number: FR-AMERICAN REGENT INC-2025002365

PATIENT
  Age: 41 Year
  Sex: Male
  Weight: 77.3 kg

DRUGS (1)
  1. FERINJECT [Suspect]
     Active Substance: FERRIC CARBOXYMALTOSE
     Indication: Anaemia
     Route: 042
     Dates: start: 20250507, end: 20250507

REACTIONS (1)
  - Superficial vein thrombosis [Recovering/Resolving]

NARRATIVE: CASE EVENT DATE: 20250514
